FAERS Safety Report 8292271-9 (Version None)
Quarter: 2012Q2

REPORT INFORMATION
  Report Type: 
  Country: None (occurrence: None)
  Receive Date: 20120417
  Receipt Date: 20120411
  Transmission Date: 20120825
  Serious: Yes (Other)
  Sender: FDA-Public Use
  Company Number: GB-FRI-1000029857

PATIENT
  Age: 79 Year
  Sex: Female

DRUGS (1)
  1. MEMANTINE HCL [Suspect]
     Indication: DEMENTIA
     Dosage: 15 MG
     Route: 048
     Dates: start: 20120322, end: 20120324

REACTIONS (2)
  - LIP SWELLING [None]
  - SWELLING FACE [None]
